FAERS Safety Report 6114399-1 (Version None)
Quarter: 2009Q1

REPORT INFORMATION
  Report Type: 
  Country: None (occurrence: None)
  Receive Date: 20090313
  Receipt Date: 20090210
  Transmission Date: 20090719
  Serious: No
  Sender: FDA-Public Use
  Company Number: US-JNJFOC-20090106033

PATIENT
  Sex: Male
  Weight: 102.06 kg

DRUGS (5)
  1. INVEGA [Suspect]
     Route: 048
  2. INVEGA [Suspect]
     Indication: THINKING ABNORMAL
     Route: 048
  3. LAMICTAL [Concomitant]
     Dosage: TAKEN AT NIGHT
  4. CYMBALTA [Concomitant]
  5. VYVANSE [Concomitant]

REACTIONS (3)
  - ABDOMINAL PAIN [None]
  - SEDATION [None]
  - SWOLLEN TONGUE [None]
